FAERS Safety Report 12944270 (Version 1)
Quarter: 2016Q4

REPORT INFORMATION
  Report Type: Spontaneous
  Country: RO (occurrence: RO)
  Receive Date: 20161115
  Receipt Date: 20161115
  Transmission Date: 20170207
  Serious: Yes (Hospitalization)
  Sender: FDA-Public Use
  Company Number: RO-TEVA-710613ISR

PATIENT
  Age: 64 Year
  Sex: Female

DRUGS (2)
  1. OXALIPLATIN ACTAVIS [Suspect]
     Active Substance: OXALIPLATIN
     Indication: RECTAL CANCER RECURRENT
     Route: 042
     Dates: start: 20161025, end: 20161025
  2. CAPECITABINE. [Concomitant]
     Active Substance: CAPECITABINE
     Indication: RECTAL CANCER
     Dosage: 5 TABLETS/DAY
     Route: 048
     Dates: start: 20161025

REACTIONS (3)
  - Dysphonia [Recovered/Resolved]
  - Dysphagia [Recovered/Resolved]
  - Suffocation feeling [Recovered/Resolved]

NARRATIVE: CASE EVENT DATE: 20161025
